FAERS Safety Report 19740628 (Version 1)
Quarter: 2021Q3

REPORT INFORMATION
  Report Type: Spontaneous
  Country: US (occurrence: US)
  Receive Date: 20210824
  Receipt Date: 20210824
  Transmission Date: 20211014
  Serious: No
  Sender: FDA-Public Use
  Company Number: US-GLENMARK PHARMACEUTICALS-2021GMK066522

PATIENT

DRUGS (2)
  1. CLOTRIMAZOLE CREAM 1% [Suspect]
     Active Substance: CLOTRIMAZOLE
     Indication: FUNGAL INFECTION
  2. CLOTRIMAZOLE CREAM 1% [Suspect]
     Active Substance: CLOTRIMAZOLE
     Indication: DERMATITIS
     Dosage: UNK
     Route: 061

REACTIONS (7)
  - Eye swelling [Unknown]
  - Blister [Unknown]
  - Eye inflammation [Unknown]
  - Dermatitis [Unknown]
  - Accidental exposure to product [Unknown]
  - Allergy to chemicals [Unknown]
  - Rash erythematous [Unknown]
